FAERS Safety Report 15858926 (Version 2)
Quarter: 2019Q1

REPORT INFORMATION
  Report Type: Spontaneous
  Country: JP (occurrence: JP)
  Receive Date: 20190123
  Receipt Date: 20190208
  Transmission Date: 20190417
  Serious: Yes (Other)
  Sender: FDA-Public Use
  Company Number: JP-GLAXOSMITHKLINE-JP2019JPN007069

PATIENT
  Age: 5 Decade
  Sex: Female

DRUGS (14)
  1. TADALAFIL. [Concomitant]
     Active Substance: TADALAFIL
     Dosage: 20 MG, UNK
  2. HEPARIN SODIUM. [Concomitant]
     Active Substance: HEPARIN SODIUM
     Indication: HYPERCOAGULATION
     Dosage: UNK
  3. FLOLAN [Suspect]
     Active Substance: EPOPROSTENOL SODIUM
     Dosage: UNK NG/KG, UNK
     Route: 042
  4. HEPARIN CALCIUM [Concomitant]
     Active Substance: HEPARIN CALCIUM
     Indication: PROPHYLAXIS
     Dosage: 10000 IU, 1D
  5. BERAPROST SODIUM [Concomitant]
     Active Substance: BERAPROST SODIUM
     Dosage: 240 ?G, UNK
  6. FUROSEMIDE. [Concomitant]
     Active Substance: FUROSEMIDE
     Dosage: UNK
  7. WARFARIN POTASSIUM [Concomitant]
     Active Substance: WARFARIN POTASSIUM
     Dosage: UNK
  8. BETAMETHASONE. [Concomitant]
     Active Substance: BETAMETHASONE
     Indication: MATERNAL THERAPY TO ENHANCE FOETAL LUNG MATURITY
     Dosage: 12 MG, UNK, TWO TIMES
  9. NITRIC OXIDE. [Concomitant]
     Active Substance: NITRIC OXIDE
  10. FLOLAN [Suspect]
     Active Substance: EPOPROSTENOL SODIUM
     Indication: PULMONARY HYPERTENSION
     Dosage: UNK NG/KG, UNK
     Route: 042
  11. FLOLAN [Suspect]
     Active Substance: EPOPROSTENOL SODIUM
     Dosage: TAPERED BY 1 NG/DAY
     Route: 042
  12. BERAPROST SODIUM [Concomitant]
     Active Substance: BERAPROST SODIUM
     Dosage: 60 ?G, UNK
  13. TADALAFIL. [Concomitant]
     Active Substance: TADALAFIL
     Dosage: 40 MG, UNK
  14. BOSENTAN HYDRATE [Concomitant]
     Dosage: 62.5 MG, 1D

REACTIONS (12)
  - Cardiac failure [Unknown]
  - Flushing [Unknown]
  - Brain natriuretic peptide increased [Unknown]
  - Heart rate increased [Unknown]
  - Volume blood increased [Unknown]
  - Volume blood decreased [Unknown]
  - Live birth [Unknown]
  - Headache [Unknown]
  - Oxygen saturation decreased [Unknown]
  - Haemodynamic instability [Recovering/Resolving]
  - Blood pressure decreased [Unknown]
  - Exposure during pregnancy [Unknown]
